FAERS Safety Report 9113507 (Version 2)
Quarter: 2013Q1

REPORT INFORMATION
  Report Type: Spontaneous
  Country: US (occurrence: US)
  Receive Date: 20130131
  Receipt Date: 20130307
  Transmission Date: 20140127
  Serious: No
  Sender: FDA-Public Use
  Company Number: US-PFIZER INC-2013034534

PATIENT
  Age: 22 Year
  Sex: Female
  Weight: 48.98 kg

DRUGS (2)
  1. DEPO-TESTOSTERONE [Suspect]
     Indication: GENDER IDENTITY DISORDER
     Dosage: 100 MG, EVERY TWO WEEKS
     Dates: start: 2012, end: 201301
  2. DEPO-TESTOSTERONE [Suspect]
     Dosage: 50 MG, WEEKLY
     Dates: start: 201301, end: 20130125

REACTIONS (5)
  - Haematocrit increased [Unknown]
  - Haemoglobin increased [Unknown]
  - Mean cell volume increased [Unknown]
  - Thyroid function test abnormal [Unknown]
  - Off label use [Unknown]
